FAERS Safety Report 26213944 (Version 1)
Quarter: 2025Q4

REPORT INFORMATION
  Report Type: Spontaneous
  Country: EU (occurrence: EU)
  Receive Date: 20251230
  Receipt Date: 20251230
  Transmission Date: 20260117
  Serious: Yes (Other)
  Sender: ELI LILLY AND COMPANY
  Company Number: None

PATIENT
  Age: 54 Year
  Sex: Female

DRUGS (2)
  1. TALTZ [Suspect]
     Active Substance: IXEKIZUMAB
     Indication: Seronegative arthritis
     Dosage: 80 MG, MONTHLY (1/M)
     Route: 065
     Dates: start: 20240303
  2. METHOTREXATE [Suspect]
     Active Substance: METHOTREXATE
     Indication: Seronegative spondyloarthritis
     Dosage: 10 MG, WEEKLY (1/W) (2.5 MG, 4 TABLETS WEEKLY)
     Route: 065
     Dates: start: 20220607, end: 20240704

REACTIONS (1)
  - Periodontitis [Recovered/Resolved]

NARRATIVE: CASE EVENT DATE: 20240801
